FAERS Safety Report 8948730 (Version 1)
Quarter: 2012Q4

REPORT INFORMATION
  Report Type: 
  Country: US (occurrence: US)
  Receive Date: 20121206
  Receipt Date: 20121206
  Transmission Date: 20130627
  Serious: No
  Sender: FDA-Public Use
  Company Number: US-BAYER-2012-127750

PATIENT
  Sex: Female

DRUGS (1)
  1. MIRENA [Suspect]
     Dosage: 20 mcg/24hr, CONT
     Route: 015
     Dates: start: 20121115, end: 20121130

REACTIONS (5)
  - Abnormal behaviour [None]
  - Procedural dizziness [None]
  - Procedural nausea [None]
  - Depression [None]
  - Mood swings [None]
